FAERS Safety Report 7588167-8 (Version None)
Quarter: 2011Q3

REPORT INFORMATION
  Report Type: 
  Country: None (occurrence: None)
  Receive Date: 20110705
  Receipt Date: 20110613
  Transmission Date: 20111222
  Serious: Yes (Hospitalization, Other)
  Sender: FDA-Public Use
  Company Number: US-BAYER-201016988NA

PATIENT
  Age: 32 Year
  Sex: Female
  Weight: 86.168 kg

DRUGS (21)
  1. YASMIN [Suspect]
     Indication: MENSTRUATION IRREGULAR
  2. PROPOXYPHENE NAPSYLATE W/ ACETAMINOPHEN [Concomitant]
     Dosage: UNK
     Dates: start: 20050101
  3. AVONEX [Concomitant]
     Dosage: 30 ?G, UNK
     Route: 030
  4. TYLENOL-500 [Concomitant]
     Indication: MIGRAINE
     Dosage: UNK
     Dates: start: 20000101
  5. VITAMIN B12 NOS [Concomitant]
     Indication: MULTIPLE SCLEROSIS
     Dosage: 1000 MG, QD
     Dates: start: 20030101
  6. CIPROFLOXACIN [Concomitant]
     Dosage: UNK
     Dates: start: 20050101
  7. YASMIN [Suspect]
     Indication: PREMENSTRUAL SYNDROME
  8. LEVAQUIN [Concomitant]
     Dosage: UNK
     Dates: start: 20050101
  9. MOTRIN [Concomitant]
     Dosage: UNK
     Dates: start: 20030101
  10. ANTIBIOTICS [Concomitant]
  11. FLEXERIL [Concomitant]
     Dosage: 10 MG, BID
     Route: 048
     Dates: start: 20050101
  12. YAZ [Suspect]
     Indication: PRODUCT USED FOR UNKNOWN INDICATION
     Dosage: UNK
     Route: 048
     Dates: start: 20071101, end: 20080101
  13. YASMIN [Suspect]
     Indication: CONTRACEPTION
     Dosage: UNK
     Route: 048
     Dates: start: 20050131, end: 20080120
  14. ACTONEL [Concomitant]
     Dosage: UNK
     Dates: start: 20050101
  15. ACETAMINOPHEN AND HYDROCODONE BITARTRATE [Concomitant]
     Dosage: UNK
     Dates: start: 20050101
  16. AVONEX [Concomitant]
     Indication: MULTIPLE SCLEROSIS
     Dosage: UNK
     Dates: start: 20080101
  17. FOSAMAX [Concomitant]
     Indication: OSTEOPOROSIS
     Dosage: UNK
     Dates: start: 20090101
  18. RANITIDINE [Concomitant]
     Dosage: UNK
     Dates: start: 20050101
  19. CYCLOBENZAPRINE [Concomitant]
     Indication: MULTIPLE SCLEROSIS
     Dosage: 10 MG, TID
     Dates: start: 20010101
  20. ZANTAC [Concomitant]
     Dosage: UNK
     Dates: start: 20050101
  21. CALCIUM [CALCIUM] [Concomitant]
     Dosage: UNK
     Dates: start: 20050101

REACTIONS (7)
  - CHOLECYSTITIS CHRONIC [None]
  - ABDOMINAL PAIN UPPER [None]
  - BILIARY DYSKINESIA [None]
  - ABDOMINAL PAIN [None]
  - PAIN IN EXTREMITY [None]
  - DYSPEPSIA [None]
  - DEEP VEIN THROMBOSIS [None]
